FAERS Safety Report 9611261 (Version 1)
Quarter: 2013Q4

REPORT INFORMATION
  Report Type: Spontaneous
  Country: US (occurrence: US)
  Receive Date: 20131010
  Receipt Date: 20131010
  Transmission Date: 20140711
  Serious: Yes (Other)
  Sender: FDA-Public Use
  Company Number: US-009507513-1310USA002107

PATIENT
  Age: 55 Year
  Sex: Male

DRUGS (7)
  1. ZOCOR [Suspect]
     Dosage: 40 MG, QD
  2. HUMIRA [Suspect]
     Indication: PSORIATIC ARTHROPATHY
     Dosage: 40 MG,ONCE IN TWO WEEKS
     Route: 042
     Dates: start: 200502
  3. JANUMET [Concomitant]
     Indication: ARTHRALGIA
     Dosage: UNK, BID
  4. NEXIUM [Concomitant]
     Indication: GASTROOESOPHAGEAL REFLUX DISEASE
     Dosage: 40 MG, QD
  5. NASONEX [Concomitant]
     Dosage: UNK, QD
  6. TRAZODONE HYDROCHLORIDE [Concomitant]
     Dosage: UNK, QD
  7. NAPROSYN [Concomitant]
     Indication: ARTHRALGIA
     Dosage: 500 MG, BID

REACTIONS (7)
  - Cholecystectomy [Unknown]
  - Type 2 diabetes mellitus [Unknown]
  - Pneumonia [Unknown]
  - Gallbladder disorder [Recovered/Resolved]
  - Hypertension [Unknown]
  - Hepatic enzyme increased [Unknown]
  - Abdominal pain [Recovered/Resolved]
